FAERS Safety Report 18172373 (Version 2)
Quarter: 2021Q1

REPORT INFORMATION
  Report Type: Spontaneous
  Country: US (occurrence: US)
  Receive Date: 20200820
  Receipt Date: 20210107
  Transmission Date: 20210419
  Serious: No
  Sender: FDA-Public Use
  Company Number: US-JNJFOC-20200821119

PATIENT
  Sex: Male

DRUGS (3)
  1. TYLENOL [Suspect]
     Active Substance: ACETAMINOPHEN
     Indication: HEADACHE
     Route: 065
  2. UPTRAVI [Concomitant]
     Active Substance: SELEXIPAG
     Indication: PULMONARY ARTERIAL HYPERTENSION
     Route: 048
     Dates: start: 20200724
  3. TYVASO [Concomitant]
     Active Substance: TREPROSTINIL
     Indication: PRODUCT USED FOR UNKNOWN INDICATION
     Route: 065

REACTIONS (1)
  - Therapeutic product effect incomplete [Unknown]
